FAERS Safety Report 12659073 (Version 2)
Quarter: 2016Q3

REPORT INFORMATION
  Report Type: Spontaneous
  Country: US (occurrence: US)
  Receive Date: 20160817
  Receipt Date: 20160824
  Transmission Date: 20161109
  Serious: Yes (Hospitalization)
  Sender: FDA-Public Use
  Company Number: US-ASTRAZENECA-2016SE86759

PATIENT
  Sex: Female
  Weight: 72.6 kg

DRUGS (13)
  1. OXYGEN. [Concomitant]
     Active Substance: OXYGEN
     Indication: DYSPNOEA
     Dosage: 3L AS NEEDED 10 TO 15 TIMES AS NEEDED WHEN SHORT OF BREATH DURING THE DAY AND CONTINUOUSLY AT NIGHT
  2. GABAPENTIN. [Concomitant]
     Active Substance: GABAPENTIN
     Indication: NEURALGIA
     Dosage: 300.0MG AS REQUIRED
  3. TUDORZA PRESSAIR [Suspect]
     Active Substance: ACLIDINIUM BROMIDE
     Indication: CHRONIC OBSTRUCTIVE PULMONARY DISEASE
     Dosage: 400MCG ONE INHALATION TWICE DAILY
     Route: 055
     Dates: start: 2014
  4. VENTOLIN [Concomitant]
     Active Substance: ALBUTEROL SULFATE
     Indication: DYSPNOEA
     Dosage: NUMBER OF PUFFS DEPENDS ON HOW BAD HER GASPING FOR BREATH IS BUT NOT USING IT AS OFTEN
  5. DALIRESP [Suspect]
     Active Substance: ROFLUMILAST
     Indication: CHRONIC OBSTRUCTIVE PULMONARY DISEASE
     Route: 048
     Dates: start: 2015
  6. TEMAZEPAM. [Concomitant]
     Active Substance: TEMAZEPAM
     Indication: SLEEP DISORDER
  7. CIPRO [Concomitant]
     Active Substance: CIPROFLOXACIN HYDROCHLORIDE
     Indication: SECRETION DISCHARGE
  8. BACLOFEN. [Concomitant]
     Active Substance: BACLOFEN
     Indication: MUSCLE SPASMS
     Dosage: 20.0MG AS REQUIRED
  9. CIPRO [Concomitant]
     Active Substance: CIPROFLOXACIN HYDROCHLORIDE
     Indication: BACTERIAL INFECTION
  10. CIPRO [Concomitant]
     Active Substance: CIPROFLOXACIN HYDROCHLORIDE
     Indication: COUGH
  11. BENADRYL [Concomitant]
     Active Substance: DIPHENHYDRAMINE HYDROCHLORIDE
     Indication: SLEEP DISORDER
  12. GABAPENTIN. [Concomitant]
     Active Substance: GABAPENTIN
     Indication: NEURALGIA
     Dosage: 300.0MG AS REQUIRED
  13. LISINOPRIL HCTZ [Suspect]
     Active Substance: HYDROCHLOROTHIAZIDE\LISINOPRIL
     Indication: BLOOD PRESSURE ABNORMAL
     Dosage: 20/12.5MG AS NEEDED
     Route: 048

REACTIONS (17)
  - Heart rate increased [Unknown]
  - Oxygen saturation abnormal [Unknown]
  - Abdominal distension [Unknown]
  - Myocardial infarction [Unknown]
  - Diarrhoea [Unknown]
  - Rhinitis [Unknown]
  - Oropharyngeal pain [Unknown]
  - Constipation [Unknown]
  - Chest pain [Unknown]
  - Nonspecific reaction [Unknown]
  - Drug dose omission [Unknown]
  - Intentional product misuse [Unknown]
  - Malaise [Unknown]
  - Dyspnoea [Unknown]
  - Nerve injury [Unknown]
  - Eructation [Unknown]
  - Condition aggravated [Unknown]
